FAERS Safety Report 25744690 (Version 1)
Quarter: 2025Q3

REPORT INFORMATION
  Report Type: Spontaneous
  Country: EU (occurrence: EU)
  Receive Date: 20250901
  Receipt Date: 20250901
  Transmission Date: 20251020
  Serious: No
  Sender: ALKEM
  Company Number: EU-ALKEM LABORATORIES LIMITED-DE-ALKEM-2025-06772

PATIENT
  Age: 45 Year
  Sex: Female

DRUGS (8)
  1. PREGABALIN [Suspect]
     Active Substance: PREGABALIN
     Indication: Product used for unknown indication
     Dosage: UNK, QD (EVERY 1 DAY)
     Route: 065
  2. PREGABALIN [Suspect]
     Active Substance: PREGABALIN
     Route: 065
  3. KOSELUGO [Suspect]
     Active Substance: SELUMETINIB
     Indication: Neurofibromatosis
     Dosage: 100 MILLIGRAM, QD (EVERY 1 DAY), CAPSULE
     Route: 048
     Dates: start: 20250410
  4. KOSELUGO [Suspect]
     Active Substance: SELUMETINIB
     Dosage: UNK, QD (EVERY 1 DAY), REDUCED DOSE, CAPSULES
     Route: 065
  5. KOSELUGO [Suspect]
     Active Substance: SELUMETINIB
     Route: 065
  6. DESOGESTREL [Concomitant]
     Active Substance: DESOGESTREL
     Indication: Product used for unknown indication
     Route: 065
  7. METOPROLOL [Concomitant]
     Active Substance: METOPROLOL
     Indication: Product used for unknown indication
     Route: 065
  8. VITAMIN B12 [Concomitant]
     Active Substance: CYANOCOBALAMIN
     Indication: Product used for unknown indication
     Route: 065

REACTIONS (6)
  - Acne [Recovered/Resolved]
  - Erythema [Recovering/Resolving]
  - Dry mouth [Recovered/Resolved]
  - Oedema peripheral [Recovered/Resolved]
  - Pruritus [Unknown]
  - Blood creatine phosphokinase increased [Unknown]

NARRATIVE: CASE EVENT DATE: 20250528
